FAERS Safety Report 4505590-6 (Version None)
Quarter: 2004Q4

REPORT INFORMATION
  Report Type: 
  Country: None (occurrence: None)
  Receive Date: 20041018
  Receipt Date: 20040722
  Transmission Date: 20050328
  Serious: No
  Sender: FDA-Public Use
  Company Number: 208009

PATIENT
  Age: 49 Year
  Sex: Male
  Weight: 95.7 kg

DRUGS (6)
  1. XOLAIR [Suspect]
     Indication: ASTHMA
     Dosage: 375 MG, Q2W, SUBCUTANEOUS
     Route: 058
     Dates: start: 20040414, end: 20040721
  2. ADVAIR (SALMETEROL XINAFOATE, FLUTICASONE PROPIONATE) [Concomitant]
  3. ADVAIR (SALMETEROL XINAFOATE, FLUTICASONE PROPIONATE) [Concomitant]
  4. PREDNISONE [Concomitant]
  5. ZYRTEC [Concomitant]
  6. ALBUTEROL (ALBUTEROL, ALBUTEROL SULFATE) [Concomitant]

REACTIONS (2)
  - FATIGUE [None]
  - LIBIDO DECREASED [None]
